FAERS Safety Report 9098142 (Version 2)
Quarter: 2013Q1

REPORT INFORMATION
  Report Type: Spontaneous
  Country: JP (occurrence: JP)
  Receive Date: 20130213
  Receipt Date: 20130304
  Transmission Date: 20140127
  Serious: Yes (Other)
  Sender: FDA-Public Use
  Company Number: JP-PFIZER INC-2013051383

PATIENT
  Age: 69 Year
  Sex: Male

DRUGS (6)
  1. ZITHROMAC [Suspect]
     Indication: PNEUMONIA
     Dosage: 500 MG PER DAY
     Route: 041
  2. BEPRICOR [Concomitant]
     Dosage: 50 MG, 1X/DAY
  3. BISOPROLOL FUMARATE [Concomitant]
     Dosage: 2.5 MG, 2X/DAY
  4. ALLOPURINOL [Concomitant]
     Dosage: 100 MG, 2X/DAY
  5. LIPITOR [Concomitant]
     Dosage: 10 MG, 1X/DAY
  6. WARFARIN [Concomitant]
     Dosage: 2.5 MG, 1X/DAY

REACTIONS (4)
  - Atrial fibrillation [Recovered/Resolved]
  - Palpitations [Recovered/Resolved]
  - Dyspnoea [Recovered/Resolved]
  - Heart rate irregular [Recovered/Resolved]
